FAERS Safety Report 8341406-8 (Version None)
Quarter: 2012Q2

REPORT INFORMATION
  Report Type: 
  Country: None (occurrence: None)
  Receive Date: 20120507
  Receipt Date: 20120502
  Transmission Date: 20120825
  Serious: Yes (Other)
  Sender: FDA-Public Use
  Company Number: BR-PFIZER INC-2012086558

PATIENT
  Age: 44 Year
  Sex: Female
  Weight: 51 kg

DRUGS (3)
  1. DIOVAN [Concomitant]
     Indication: HYPERTENSION
     Dosage: UNK
     Dates: start: 20110801
  2. LYRICA [Suspect]
     Indication: FIBROMYALGIA
     Dosage: 1 CAPSULE OF 75 MG, EVERY 12 HOURS
     Route: 048
     Dates: start: 20120301
  3. DEXA-CITONEURIN [Concomitant]

REACTIONS (8)
  - SOMNOLENCE [None]
  - NAUSEA [None]
  - FEELING OF RELAXATION [None]
  - DIZZINESS [None]
  - ACTIVITIES OF DAILY LIVING IMPAIRED [None]
  - HEAD DISCOMFORT [None]
  - ABDOMINAL PAIN UPPER [None]
  - DISTURBANCE IN ATTENTION [None]
